FAERS Safety Report 23763131 (Version 2)
Quarter: 2024Q2

REPORT INFORMATION
  Report Type: Spontaneous
  Country: CA (occurrence: CA)
  Receive Date: 20240419
  Receipt Date: 20240521
  Transmission Date: 20240716
  Serious: Yes (Death)
  Sender: FDA-Public Use
  Company Number: CA-PFIZER INC-PV202400052066

PATIENT
  Age: 67 Year
  Weight: 74 kg

DRUGS (1)
  1. IBRANCE [Suspect]
     Active Substance: PALBOCICLIB
     Indication: Breast cancer metastatic
     Dosage: 75 MG
     Route: 048
     Dates: start: 20180326, end: 20231031

REACTIONS (1)
  - Death [Fatal]

NARRATIVE: CASE EVENT DATE: 20231031
